FAERS Safety Report 11986332 (Version 1)
Quarter: 2016Q1

REPORT INFORMATION
  Report Type: Spontaneous
  Country: US (occurrence: None)
  Receive Date: 20160201
  Receipt Date: 20160201
  Transmission Date: 20160526
  Serious: Yes (Disabling)
  Sender: FDA-Public Use
  Company Number: None

PATIENT
  Age: 66 Year
  Sex: Male
  Weight: 92.99 kg

DRUGS (6)
  1. DILT-XR [Suspect]
     Active Substance: DILTIAZEM
     Indication: ARRHYTHMIA
     Dosage: 1 PILL
     Route: 048
     Dates: start: 20151228, end: 20160130
  2. C/PAP DEVICE [Concomitant]
  3. OMEPRAZOLE. [Concomitant]
     Active Substance: OMEPRAZOLE
  4. VITAMIN D [Concomitant]
     Active Substance: CHOLECALCIFEROL
  5. ASPIRIN LOW DOSE [Concomitant]
     Active Substance: ASPIRIN
  6. POTASSIUM [Concomitant]
     Active Substance: POTASSIUM

REACTIONS (1)
  - Hypersensitivity [None]

NARRATIVE: CASE EVENT DATE: 20160127
